FAERS Safety Report 16877736 (Version 1)
Quarter: 2019Q4

REPORT INFORMATION
  Report Type: Spontaneous
  Country: TH (occurrence: TH)
  Receive Date: 20191002
  Receipt Date: 20191002
  Transmission Date: 20200122
  Serious: Yes (Death, Hospitalization)
  Sender: FDA-Public Use
  Company Number: TH-EPIC PHARMA LLC-2019EPC00273

PATIENT
  Age: 69 Year
  Sex: Female

DRUGS (1)
  1. METHADONE [Suspect]
     Active Substance: METHADONE HYDROCHLORIDE
     Route: 065

REACTIONS (6)
  - Hypotension [Not Recovered/Not Resolved]
  - Drug abuse [Not Recovered/Not Resolved]
  - Respiratory failure [Not Recovered/Not Resolved]
  - Supraventricular tachycardia [Not Recovered/Not Resolved]
  - Cardiac arrest [Fatal]
  - Coma [Not Recovered/Not Resolved]
